FAERS Safety Report 13592463 (Version 1)
Quarter: 2017Q2

REPORT INFORMATION
  Report Type: Spontaneous
  Country: FR (occurrence: FR)
  Receive Date: 20170530
  Receipt Date: 20170530
  Transmission Date: 20170830
  Serious: Yes (Death)
  Sender: FDA-Public Use
  Company Number: FR-TEVA-771764ROM

PATIENT
  Age: 47 Year
  Sex: Female

DRUGS (7)
  1. DOXORUBICINE TEVA 50 MG/25 ML [Suspect]
     Active Substance: DOXORUBICIN
     Indication: OVARIAN CANCER METASTATIC
     Dosage: 30 MILLIGRAM DAILY;
     Route: 042
     Dates: start: 20170310, end: 20170312
  2. PANTOPRAZOLE [Concomitant]
     Active Substance: PANTOPRAZOLE
     Dosage: 20 MILLIGRAM DAILY;
  3. CALCIDIA [Concomitant]
     Active Substance: CALCIUM POLYCARBOPHIL
     Dosage: 1 DOSAGE FORMS DAILY;
  4. ZYMAD [Concomitant]
     Active Substance: CHOLECALCIFEROL
     Dosage: 4 DOSAGE FORMS DAILY; DOSAGE FORM= DROP
  5. CORTANCYL [Concomitant]
     Active Substance: PREDNISONE
     Dosage: 20 MILLIGRAM DAILY;
  6. LEVOTHYROX [Concomitant]
     Active Substance: LEVOTHYROXINE
     Dosage: 112.5 MICROGRAM DAILY;
  7. HOLOXAN 2 G [Suspect]
     Active Substance: IFOSFAMIDE
     Indication: OVARIAN CANCER METASTATIC
     Dosage: 3.84 GRAM DAILY;
     Dates: start: 20170310, end: 20170312

REACTIONS (1)
  - Encephalopathy [Fatal]

NARRATIVE: CASE EVENT DATE: 20170312
